FAERS Safety Report 4384525-3 (Version None)
Quarter: 2004Q2

REPORT INFORMATION
  Report Type: 
  Country: None (occurrence: None)
  Receive Date: 20040610
  Receipt Date: 20040427
  Transmission Date: 20050107
  Serious: Yes (Life-Threatening, Hospitalization)
  Sender: FDA-Public Use
  Company Number: A03200401306

PATIENT
  Age: 56 Year
  Sex: Female
  Weight: 94.8018 kg

DRUGS (7)
  1. ELOXATIN [Suspect]
     Indication: COLON CANCER STAGE III
     Dosage: 100 MG Q3W - INTRAVENOUS NOS
     Route: 042
     Dates: start: 20040426, end: 20040426
  2. LEUCOVORIN [Concomitant]
  3. FLUOROURACIL [Concomitant]
  4. PALONOSETRON [Concomitant]
  5. DEXAMETHASONE [Concomitant]
  6. MAGNESIUM SULFATE [Concomitant]
  7. CALCIUM GLUCONATE [Concomitant]

REACTIONS (3)
  - ANAPHYLACTIC SHOCK [None]
  - DEPRESSED LEVEL OF CONSCIOUSNESS [None]
  - DYSPNOEA [None]
